FAERS Safety Report 5384688-7 (Version None)
Quarter: 2007Q3

REPORT INFORMATION
  Report Type: 
  Country: None (occurrence: None)
  Receive Date: 20070710
  Receipt Date: 20070509
  Transmission Date: 20080115
  Serious: Yes (Other)
  Sender: FDA-Public Use
  Company Number: 2007-01374

PATIENT
  Age: 50 Year
  Sex: Male
  Weight: 110.7 kg

DRUGS (9)
  1. VELCADE [Suspect]
     Indication: MULTIPLE MYELOMA
     Dosage: 2.60 MG, INTRAVENOUS
     Route: 042
     Dates: start: 20070409
  2. DOXIL [Suspect]
     Indication: MULTIPLE MYELOMA
     Dosage: 60.00 MG, INTRAVENOUS
     Route: 042
  3. DEXAMETHASONE TAB [Suspect]
     Indication: MULTIPLE MYELOMA
     Dosage: 40.00 MG, ORAL; 20.00, ORAL
     Route: 048
  4. ZOMETA [Concomitant]
  5. LASIX [Concomitant]
  6. PEPCID [Concomitant]
  7. POTASSIUM CHLORIDE [Concomitant]
  8. MULTIVITAMINS (ERGOCALCIFEROL, PANTHENOL, NICOTINAMIDE, RIBOFLAVIN, TH [Concomitant]
  9. ASPIRIN [Concomitant]

REACTIONS (2)
  - ALANINE AMINOTRANSFERASE INCREASED [None]
  - ASPARTATE AMINOTRANSFERASE INCREASED [None]
